FAERS Safety Report 8078963-5 (Version None)
Quarter: 2012Q1

REPORT INFORMATION
  Report Type: 
  Country: None (occurrence: None)
  Receive Date: 20120128
  Receipt Date: 20110621
  Transmission Date: 20120608
  Serious: No
  Sender: FDA-Public Use
  Company Number: US-ABBOTT-11P-163-0734233-00

PATIENT
  Age: 37 Year
  Sex: Male

DRUGS (2)
  1. HUMIRA [Suspect]
     Indication: CROHN'S DISEASE
     Dosage: 4 INJECTIONS DAY 1
     Route: 058
     Dates: start: 20110607, end: 20110607
  2. HUMIRA [Suspect]
     Dosage: 2 INJECTIONS DAY 15
     Route: 058

REACTIONS (4)
  - ABSCESS [None]
  - ABSCESS DRAINAGE [None]
  - INJECTION SITE SWELLING [None]
  - INJECTION SITE ERYTHEMA [None]
